FAERS Safety Report 7287991-9 (Version None)
Quarter: 2011Q1

REPORT INFORMATION
  Report Type: 
  Country: None (occurrence: None)
  Receive Date: 20110211
  Receipt Date: 20110131
  Transmission Date: 20110831
  Serious: Yes (Other)
  Sender: FDA-Public Use
  Company Number: PHHY2011US07499

PATIENT
  Sex: Female

DRUGS (1)
  1. RECLAST [Suspect]

REACTIONS (5)
  - MYALGIA [None]
  - CHEST DISCOMFORT [None]
  - SWOLLEN TONGUE [None]
  - VOMITING [None]
  - PERICARDIAL EFFUSION [None]
